FAERS Safety Report 19449766 (Version 1)
Quarter: 2021Q2

REPORT INFORMATION
  Report Type: Spontaneous
  Country: US (occurrence: GB)
  Receive Date: 20210622
  Receipt Date: 20210622
  Transmission Date: 20210717
  Serious: Yes (Hospitalization, Other)
  Sender: FDA-Public Use
  Company Number: GB-BRECKENRIDGE PHARMACEUTICAL, INC.-2112985

PATIENT
  Age: 98 Year
  Sex: Female

DRUGS (1)
  1. OMEPRAZOLE. [Suspect]
     Active Substance: OMEPRAZOLE
     Route: 048

REACTIONS (9)
  - X-ray of pelvis and hip abnormal [Unknown]
  - Regurgitation [Unknown]
  - Diarrhoea [Unknown]
  - Fall [Unknown]
  - Gait disturbance [Unknown]
  - Bladder disorder [Unknown]
  - Pain [Unknown]
  - Gastrooesophageal reflux disease [Unknown]
  - Stress [Unknown]
